FAERS Safety Report 7013239-6 (Version None)
Quarter: 2010Q3

REPORT INFORMATION
  Report Type: 
  Country: None (occurrence: None)
  Receive Date: 20100924
  Receipt Date: 20100915
  Transmission Date: 20110219
  Serious: Yes (Other)
  Sender: FDA-Public Use
  Company Number: CA-MERCK-1009USA03395

PATIENT
  Age: 9 Year
  Sex: Male

DRUGS (1)
  1. SINGULAIR [Suspect]
     Route: 048

REACTIONS (5)
  - ABNORMAL DREAMS [None]
  - ANXIETY [None]
  - DYSPNOEA [None]
  - FEAR OF DEATH [None]
  - PANIC ATTACK [None]
